FAERS Safety Report 6941637-5 (Version None)
Quarter: 2010Q3

REPORT INFORMATION
  Report Type: 
  Country: None (occurrence: None)
  Receive Date: 20100825
  Receipt Date: 20100818
  Transmission Date: 20110219
  Serious: Yes (Hospitalization, Other)
  Sender: FDA-Public Use
  Company Number: US-AMGEN-KDC420105

PATIENT
  Sex: Male
  Weight: 102 kg

DRUGS (20)
  1. DENOSUMAB [Suspect]
     Indication: PROSTATE CANCER
     Route: 058
     Dates: start: 20091013
  2. LIPITOR [Suspect]
     Route: 048
     Dates: start: 20100408
  3. AUGMENTIN '125' [Suspect]
  4. DURICEF [Suspect]
  5. SULTAMICILLIN [Suspect]
  6. LEVAQUIN [Suspect]
  7. METFORMIN HCL [Concomitant]
     Route: 048
     Dates: start: 20100320
  8. LISINOPRIL [Concomitant]
     Route: 048
     Dates: start: 20100412
  9. PREDNISONE [Concomitant]
     Route: 048
     Dates: start: 20100501
  10. LEVEMIR [Concomitant]
     Route: 058
     Dates: start: 20100518
  11. COUMADIN [Concomitant]
     Route: 048
     Dates: start: 20100716
  12. ARICEPT [Concomitant]
     Route: 048
  13. PRILOSEC [Concomitant]
     Route: 048
  14. ALBUTEROL [Concomitant]
     Route: 055
  15. LANTUS [Concomitant]
  16. ADVAIR DISKUS 100/50 [Concomitant]
     Route: 055
  17. VERAPAMIL [Concomitant]
     Route: 048
  18. SPIRIVA [Concomitant]
  19. OXYGEN [Concomitant]
  20. ACETAMINOPHEN [Concomitant]

REACTIONS (4)
  - HYPOTENSION [None]
  - LIVER FUNCTION TEST ABNORMAL [None]
  - PERIPHERAL ISCHAEMIA [None]
  - VENTRICULAR EXTRASYSTOLES [None]
